FAERS Safety Report 18770502 (Version 1)
Quarter: 2021Q1

REPORT INFORMATION
  Report Type: Report from Study
  Country: CN (occurrence: CN)
  Receive Date: 20210122
  Receipt Date: 20210122
  Transmission Date: 20210419
  Serious: Yes (Other)
  Sender: FDA-Public Use
  Company Number: CN-BRISTOL-MYERS SQUIBB COMPANY-BMS-2021-005004

PATIENT
  Sex: Male

DRUGS (1)
  1. NIVOLUMAB [Suspect]
     Active Substance: NIVOLUMAB
     Indication: SQUAMOUS CELL CARCINOMA
     Dosage: 40 MILLIGRAM, Q8WK
     Route: 042
     Dates: start: 20200319

REACTIONS (4)
  - Fear [Unknown]
  - Off label use [Unknown]
  - Hypothyroidism [Unknown]
  - Cataract [Unknown]

NARRATIVE: CASE EVENT DATE: 2020
